FAERS Safety Report 25524107 (Version 1)
Quarter: 2025Q3

REPORT INFORMATION
  Report Type: Spontaneous
  Country: US (occurrence: None)
  Receive Date: 20250703
  Receipt Date: 20250703
  Transmission Date: 20251020
  Serious: Yes (Other)
  Sender: FDA-CTU
  Company Number: None

PATIENT
  Age: 66 Year
  Sex: Female
  Weight: 67.5 kg

DRUGS (6)
  1. PROLIA [Suspect]
     Active Substance: DENOSUMAB
     Indication: Osteoporosis
  2. LEVOXYL [Concomitant]
     Active Substance: LEVOTHYROXINE SODIUM
  3. LAMICTAL [Concomitant]
     Active Substance: LAMOTRIGINE
  4. CALCIUM [Concomitant]
     Active Substance: CALCIUM
  5. VITAMINS [Concomitant]
     Active Substance: VITAMINS
  6. MAGNESIUM [Concomitant]
     Active Substance: MAGNESIUM

REACTIONS (18)
  - Headache [None]
  - Arthralgia [None]
  - Arthralgia [None]
  - Neck pain [None]
  - Muscular weakness [None]
  - Rash [None]
  - Rash erythematous [None]
  - Feeling hot [None]
  - Hyperaesthesia teeth [None]
  - Jaw disorder [None]
  - Tenderness [None]
  - Oral hyperaesthesia [None]
  - Pollakiuria [None]
  - Urinary incontinence [None]
  - Fatigue [None]
  - Asthenia [None]
  - Apathy [None]
  - Hypersomnia [None]

NARRATIVE: CASE EVENT DATE: 20250613
